FAERS Safety Report 4347113-0 (Version None)
Quarter: 2004Q1

REPORT INFORMATION
  Report Type: 
  Country: None (occurrence: None)
  Receive Date: 20040329
  Receipt Date: 20040216
  Transmission Date: 20041129
  Serious: No
  Sender: FDA-Public Use
  Company Number: USA040259488

PATIENT
  Sex: Female

DRUGS (1)
  1. STRATTERA [Suspect]
     Dosage: 40 MG/DAY
     Dates: start: 20040211

REACTIONS (4)
  - FEELING ABNORMAL [None]
  - PYREXIA [None]
  - TREMOR [None]
  - WEIGHT DECREASED [None]
